FAERS Safety Report 9325062 (Version 2)
Quarter: 2013Q3

REPORT INFORMATION
  Report Type: Spontaneous
  Country: HR (occurrence: HR)
  Receive Date: 20130603
  Receipt Date: 20130718
  Transmission Date: 20140515
  Serious: No
  Sender: FDA-Public Use
  Company Number: HR-B.I. PHARMACEUTICALS,INC./RIDGEFIELD-2013-AP-00434AP

PATIENT
  Age: 70 Year
  Sex: Female
  Weight: 67 kg

DRUGS (4)
  1. TRAJENTA [Suspect]
     Indication: TYPE 2 DIABETES MELLITUS
     Dates: start: 201303
  2. CONCOR [Concomitant]
  3. XANAX [Concomitant]
  4. IRUMED [Concomitant]

REACTIONS (1)
  - Urticaria [Recovered/Resolved]
